FAERS Safety Report 14631399 (Version 2)
Quarter: 2018Q1

REPORT INFORMATION
  Report Type: Spontaneous
  Country: IL (occurrence: IL)
  Receive Date: 20180313
  Receipt Date: 20180321
  Transmission Date: 20180509
  Serious: Yes (Other)
  Sender: FDA-Public Use
  Company Number: PHHY2018IL041612

PATIENT
  Age: 43 Year
  Sex: Male
  Weight: 80 kg

DRUGS (1)
  1. COSENTYX [Suspect]
     Active Substance: SECUKINUMAB
     Indication: PSORIASIS
     Dosage: 300 MG, QMO
     Route: 058
     Dates: start: 20161208

REACTIONS (6)
  - Dizziness [Unknown]
  - Arrhythmia [Unknown]
  - Chest discomfort [Unknown]
  - Palpitations [Unknown]
  - Inappropriate schedule of drug administration [Unknown]
  - Libido decreased [Unknown]

NARRATIVE: CASE EVENT DATE: 20161208
